FAERS Safety Report 9729886 (Version 1)
Quarter: 2013Q4

REPORT INFORMATION
  Report Type: Spontaneous
  Country: GB (occurrence: None)
  Receive Date: 20131203
  Receipt Date: 20131203
  Transmission Date: 20140711
  Serious: Yes (Other)
  Sender: FDA-Public Use
  Company Number: AUR-APL-2013-09947

PATIENT
  Age: 73 Year
  Sex: Male
  Weight: 88 kg

DRUGS (4)
  1. BISOPROLOL (BISOPROLOL) [Suspect]
     Indication: PRODUCT USED FOR UNKNOWN INDICATION
     Dates: start: 20130427
  2. PARACETAMOL (PARACETAMOL) [Concomitant]
  3. PRADAXA (DABIGATRAN ETEXILATE MESILATE) [Concomitant]
  4. TRAMADOL (TRAMADOL) [Concomitant]

REACTIONS (3)
  - Pain [None]
  - Pain in extremity [None]
  - Arthralgia [None]
